FAERS Safety Report 7426160-6 (Version None)
Quarter: 2011Q2

REPORT INFORMATION
  Report Type: 
  Country: None (occurrence: None)
  Receive Date: 20110420
  Receipt Date: 20110414
  Transmission Date: 20111010
  Serious: Yes (Other)
  Sender: FDA-Public Use
  Company Number: PHHY2011BR31783

PATIENT
  Sex: Male

DRUGS (2)
  1. COMTAN [Suspect]
     Route: 048
  2. DIOVAN AMLO FIX [Suspect]

REACTIONS (1)
  - PARKINSON'S DISEASE [None]
